FAERS Safety Report 21183429 (Version 1)
Quarter: 2022Q3

REPORT INFORMATION
  Report Type: Spontaneous
  Country: US (occurrence: US)
  Receive Date: 20220808
  Receipt Date: 20220808
  Transmission Date: 20221026
  Serious: Yes (Life-Threatening, Hospitalization, Other)
  Sender: FDA-Public Use
  Company Number: US-HORIZON THERAPEUTICS-HZN-2022-005718

PATIENT

DRUGS (6)
  1. RAYOS [Suspect]
     Active Substance: PREDNISONE
     Indication: Sarcoidosis
     Dosage: 10 MG, QD
     Route: 048
     Dates: start: 2020, end: 2020
  2. RAYOS [Suspect]
     Active Substance: PREDNISONE
     Dosage: TAPER DOSE
     Route: 048
  3. METHYLPREDNISOLONE [Suspect]
     Active Substance: METHYLPREDNISOLONE
     Indication: Sarcoidosis
     Dosage: FIRST DOSE
     Route: 065
     Dates: start: 2020
  4. METHYLPREDNISOLONE [Suspect]
     Active Substance: METHYLPREDNISOLONE
     Dosage: UNKNOWN DOSE
     Route: 065
     Dates: start: 202006
  5. AMOXICILLIN\CLAVULANIC ACID [Concomitant]
     Active Substance: AMOXICILLIN\CLAVULANIC ACID
  6. AMPHOTERICIN B [Concomitant]
     Active Substance: AMPHOTERICIN B

REACTIONS (8)
  - Disseminated blastomycosis [Recovering/Resolving]
  - Encephalopathy [Unknown]
  - Renal impairment [Unknown]
  - Infection masked [Recovered/Resolved]
  - Osteomyelitis blastomyces [Recovering/Resolving]
  - Blastomycosis [Recovering/Resolving]
  - Infection [Recovering/Resolving]
  - Pulmonary blastomycosis [Recovering/Resolving]

NARRATIVE: CASE EVENT DATE: 20200101
